FAERS Safety Report 5994062-8 (Version None)
Quarter: 2008Q4

REPORT INFORMATION
  Report Type: 
  Country: None (occurrence: None)
  Receive Date: 20081212
  Receipt Date: 20080903
  Transmission Date: 20090506
  Serious: Yes (Other)
  Sender: FDA-Public Use
  Company Number: US-ABBOTT-08P-163-0473259-00

PATIENT
  Sex: Male
  Weight: 106.69 kg

DRUGS (6)
  1. HUMIRA [Suspect]
     Indication: PSORIASIS
     Route: 058
     Dates: start: 20080601, end: 20080701
  2. HUMIRA [Suspect]
     Route: 058
     Dates: start: 20080801, end: 20080902
  3. HUMIRA [Suspect]
     Route: 058
     Dates: start: 20080902, end: 20080902
  4. HUMIRA [Suspect]
     Route: 058
  5. DIOVAN HCT [Concomitant]
     Indication: HYPERTENSION
     Route: 048
  6. SIMVASTATIN [Concomitant]
     Indication: BLOOD CHOLESTEROL INCREASED
     Route: 048

REACTIONS (3)
  - BACK PAIN [None]
  - IMPAIRED HEALING [None]
  - PSORIASIS [None]
